FAERS Safety Report 22300283 (Version 2)
Quarter: 2023Q2

REPORT INFORMATION
  Report Type: Spontaneous
  Country: US (occurrence: US)
  Receive Date: 20230509
  Receipt Date: 20230626
  Transmission Date: 20230721
  Serious: Yes (Disabling)
  Sender: FDA-Public Use
  Company Number: US-PFIZER INC-PV202300081562

PATIENT
  Age: 75 Year
  Sex: Female

DRUGS (1)
  1. XELJANZ XR [Suspect]
     Active Substance: TOFACITINIB CITRATE
     Dosage: UNK

REACTIONS (3)
  - Hand deformity [Unknown]
  - Finger deformity [Unknown]
  - Lung disorder [Unknown]
